FAERS Safety Report 21000505 (Version 2)
Quarter: 2022Q3

REPORT INFORMATION
  Report Type: Spontaneous
  Country: US (occurrence: US)
  Receive Date: 20220623
  Receipt Date: 20220708
  Transmission Date: 20221026
  Serious: Yes (Hospitalization)
  Sender: FDA-Public Use
  Company Number: US-BRISTOL-MYERS SQUIBB COMPANY-2022-058769

PATIENT
  Age: 92 Year
  Sex: Female

DRUGS (1)
  1. REVLIMID [Suspect]
     Active Substance: LENALIDOMIDE
     Indication: Plasma cell myeloma
     Dosage: 1 CAPSULE (15 MILLIGRAM) EVERY DAY FOR 21 DAYS FOLLOWED BY 7 DAYS OFF
     Route: 048
     Dates: start: 20220613

REACTIONS (7)
  - Blood calcium increased [Unknown]
  - Blood pressure abnormal [Unknown]
  - Auditory disorder [Unknown]
  - Fatigue [Unknown]
  - Confusional state [Unknown]
  - Renal function test abnormal [Unknown]
  - Malaise [Unknown]
